FAERS Safety Report 18323843 (Version 1)
Quarter: 2020Q3

REPORT INFORMATION
  Report Type: Spontaneous
  Country: AU (occurrence: AU)
  Receive Date: 20200929
  Receipt Date: 20200929
  Transmission Date: 20201103
  Serious: Yes (Other)
  Sender: FDA-Public Use
  Company Number: AU-ABBVIE-20K-008-3582606-00

PATIENT
  Sex: Female

DRUGS (3)
  1. TOFACITINIB [Concomitant]
     Active Substance: TOFACITINIB
     Indication: PRODUCT USED FOR UNKNOWN INDICATION
  2. RINVOQ [Suspect]
     Active Substance: UPADACITINIB
     Indication: PRODUCT USED FOR UNKNOWN INDICATION
     Route: 048
     Dates: start: 202008, end: 2020
  3. ABATACEPT [Concomitant]
     Active Substance: ABATACEPT
     Indication: PRODUCT USED FOR UNKNOWN INDICATION
     Dates: start: 2020

REACTIONS (2)
  - Gastrointestinal perforation [Unknown]
  - Diverticulitis [Unknown]

NARRATIVE: CASE EVENT DATE: 2020
